FAERS Safety Report 13240884 (Version 1)
Quarter: 2017Q1

REPORT INFORMATION
  Report Type: Spontaneous
  Country: US (occurrence: US)
  Receive Date: 20170216
  Receipt Date: 20170216
  Transmission Date: 20170428
  Serious: Yes (Other)
  Sender: FDA-Public Use
  Company Number: US-TEVA-736734ACC

PATIENT
  Sex: Female

DRUGS (1)
  1. AZITHROMYCIN ANHYDROUS. [Suspect]
     Active Substance: AZITHROMYCIN ANHYDROUS
     Route: 048
     Dates: start: 20161128, end: 20161201

REACTIONS (5)
  - Product colour issue [Unknown]
  - Product quality issue [Unknown]
  - Dysuria [Unknown]
  - Mood altered [Unknown]
  - Urinary retention [Unknown]
